FAERS Safety Report 8799668 (Version 2)
Quarter: 2013Q4

REPORT INFORMATION
  Report Type: Spontaneous
  Country: US (occurrence: US)
  Receive Date: 20120919
  Receipt Date: 20131105
  Transmission Date: 20140711
  Serious: Yes (Hospitalization, Other)
  Sender: FDA-Public Use
  Company Number: US-009507513-1209USA005752

PATIENT
  Sex: Male

DRUGS (6)
  1. SAPHRIS [Suspect]
     Dosage: 5 MG, IN THE MORNING AND 20 MG AT BED TIME
     Route: 060
  2. CHANTIX [Suspect]
     Dosage: 0.5 MG, BID
     Route: 048
  3. CHANTIX [Suspect]
     Dosage: 1 MG, BID
     Route: 048
  4. COZAAR [Concomitant]
     Dosage: 100 MG, QD
  5. OMEPRAZOLE [Concomitant]
  6. DEPAKOTE [Concomitant]
     Dosage: 3000 MG, QD

REACTIONS (9)
  - Paranoia [Unknown]
  - Feeling abnormal [Unknown]
  - Depression [Unknown]
  - Emotional disorder [Unknown]
  - Mood altered [Unknown]
  - Confusional state [Unknown]
  - Insomnia [Unknown]
  - Mood swings [Unknown]
  - Restlessness [Unknown]
